FAERS Safety Report 9166484 (Version 1)
Quarter: 2013Q1

REPORT INFORMATION
  Report Type: Spontaneous
  Country: AR (occurrence: AR)
  Receive Date: 20130315
  Receipt Date: 20130315
  Transmission Date: 20140127
  Serious: Yes (Other)
  Sender: FDA-Public Use
  Company Number: AR-ASTRAZENECA-2013SE16736

PATIENT
  Sex: Female

DRUGS (3)
  1. ETASEL [Suspect]
     Indication: BIPOLAR DISORDER
     Route: 048
     Dates: start: 201302
  2. LAMOTRIGINE [Concomitant]
  3. CLONAZEPAM [Concomitant]

REACTIONS (3)
  - Head injury [Unknown]
  - Loss of consciousness [Unknown]
  - Syncope [Not Recovered/Not Resolved]
